FAERS Safety Report 12329865 (Version 1)
Quarter: 2016Q2

REPORT INFORMATION
  Report Type: Spontaneous
  Country: US (occurrence: US)
  Receive Date: 20160503
  Receipt Date: 20160503
  Transmission Date: 20160815
  Serious: No
  Sender: FDA-Public Use
  Company Number: US-OSMOTICA_PHARMACEUTICAL_CORP-POI0573201600018

PATIENT
  Sex: Male

DRUGS (1)
  1. KHEDEZLA EXTENDED-RELEASE [Suspect]
     Active Substance: DESVENLAFAXINE
     Dates: start: 2015

REACTIONS (1)
  - Drug withdrawal syndrome [Unknown]

NARRATIVE: CASE EVENT DATE: 2016
